FAERS Safety Report 11536181 (Version 4)
Quarter: 2016Q1

REPORT INFORMATION
  Report Type: Spontaneous
  Country: US (occurrence: US)
  Receive Date: 20150922
  Receipt Date: 20160304
  Transmission Date: 20160525
  Serious: Yes (Other)
  Sender: FDA-Public Use
  Company Number: US-GLAXOSMITHKLINE INC.-US2015GSK134879

PATIENT
  Age: 62 Year
  Sex: Female

DRUGS (25)
  1. AVANDIA [Suspect]
     Active Substance: ROSIGLITAZONE MALEATE
  2. NITROGLYCERIN. [Suspect]
     Active Substance: NITROGLYCERIN
  3. COUMADIN [Suspect]
     Active Substance: WARFARIN SODIUM
  4. WELLBUTRIN XL [Suspect]
     Active Substance: BUPROPION HYDROCHLORIDE
  5. CHLORPHENIRAMINE MALEATE. [Concomitant]
     Active Substance: CHLORPHENIRAMINE MALEATE
  6. TANZEUM [Suspect]
     Active Substance: ALBIGLUTIDE
     Indication: DIABETES MELLITUS
     Dosage: 30 MG, WE
     Route: 042
     Dates: start: 201502
  7. GLUMETZA [Suspect]
     Active Substance: METFORMIN HYDROCHLORIDE
  8. ISOSORBIDE. [Suspect]
     Active Substance: ISOSORBIDE
  9. METFORMIN [Suspect]
     Active Substance: METFORMIN HYDROCHLORIDE
  10. SYNTHROID [Concomitant]
     Active Substance: LEVOTHYROXINE SODIUM
  11. MOTRIN [Suspect]
     Active Substance: IBUPROFEN
  12. BUSPIRONE HCL [Suspect]
     Active Substance: BUSPIRONE HYDROCHLORIDE
  13. PREDNISONE. [Concomitant]
     Active Substance: PREDNISONE
  14. FLUTICASONE PROPIONATE. [Suspect]
     Active Substance: FLUTICASONE PROPIONATE
  15. HUMALOG (INSULIN LISPRO RDNA ORIGIN) [Concomitant]
  16. LOSARTAN + HYDROCHLOROTHIAZIDE [Concomitant]
     Active Substance: HYDROCHLOROTHIAZIDE\LOSARTAN
  17. HUMALOG 75/25 [Concomitant]
  18. COPAXONE [Concomitant]
     Active Substance: GLATIRAMER ACETATE
  19. TANZEUM [Suspect]
     Active Substance: ALBIGLUTIDE
     Indication: GLYCOSYLATED HAEMOGLOBIN DECREASED
  20. IODINE [Suspect]
     Active Substance: IODINE
  21. SIMVASTATIN. [Concomitant]
     Active Substance: SIMVASTATIN
  22. BAYER LOW DOSE [Concomitant]
     Active Substance: ASPIRIN
  23. MOTRIN IB [Suspect]
     Active Substance: IBUPROFEN
  24. PLAVIX [Suspect]
     Active Substance: CLOPIDOGREL BISULFATE
  25. VITAMIN D3 [Concomitant]
     Active Substance: CHOLECALCIFEROL

REACTIONS (11)
  - Skin lesion [Unknown]
  - Colonoscopy [Unknown]
  - Colectomy [Unknown]
  - Colon operation [Unknown]
  - Peripheral swelling [Unknown]
  - Swelling face [Unknown]
  - Neoplasm malignant [Unknown]
  - Peripheral coldness [Unknown]
  - Drug hypersensitivity [Unknown]
  - Colon cancer [Unknown]
  - Surgery [Unknown]

NARRATIVE: CASE EVENT DATE: 20150603
